FAERS Safety Report 7839976-9 (Version None)
Quarter: 2011Q4

REPORT INFORMATION
  Report Type: 
  Country: None (occurrence: None)
  Receive Date: 20111025
  Receipt Date: 20111017
  Transmission Date: 20120403
  Serious: Yes (Hospitalization)
  Sender: FDA-Public Use
  Company Number: US-BIOGENIDEC-2011BI039577

PATIENT
  Age: 61 Year
  Sex: Female

DRUGS (6)
  1. AVONEX [Suspect]
     Indication: MULTIPLE SCLEROSIS
     Route: 030
     Dates: start: 20110901, end: 20110901
  2. AVONEX [Suspect]
     Route: 030
     Dates: start: 20110901, end: 20110901
  3. AVONEX [Suspect]
     Route: 030
     Dates: start: 20111010
  4. AVONEX [Suspect]
     Route: 030
     Dates: start: 20000101, end: 20020101
  5. AVONEX [Suspect]
     Route: 030
     Dates: start: 20050501, end: 20050601
  6. AVONEX [Suspect]
     Route: 030
     Dates: start: 20111001, end: 20111001

REACTIONS (3)
  - INFLUENZA LIKE ILLNESS [None]
  - DEPRESSED MOOD [None]
  - MULTIPLE SCLEROSIS [None]
